FAERS Safety Report 19285399 (Version 1)
Quarter: 2021Q2

REPORT INFORMATION
  Report Type: Spontaneous
  Country: US (occurrence: US)
  Receive Date: 20210521
  Receipt Date: 20210521
  Transmission Date: 20210717
  Serious: No
  Sender: FDA-Public Use
  Company Number: US-RADIUS HEALTH INC.-2020US002044

PATIENT
  Age: 61 Year
  Sex: Female

DRUGS (2)
  1. TYMLOS [Suspect]
     Active Substance: ABALOPARATIDE
     Indication: OSTEOPOROSIS POSTMENOPAUSAL
  2. TYMLOS [Suspect]
     Active Substance: ABALOPARATIDE
     Indication: ILLNESS
     Dosage: UNK MCG, DAILY
     Route: 058
     Dates: start: 20200520

REACTIONS (3)
  - Off label use [Not Recovered/Not Resolved]
  - Limb discomfort [Recovering/Resolving]
  - Myalgia [Recovering/Resolving]

NARRATIVE: CASE EVENT DATE: 20200520
